FAERS Safety Report 12783057 (Version 1)
Quarter: 2016Q3

REPORT INFORMATION
  Report Type: Spontaneous
  Country: LU (occurrence: LU)
  Receive Date: 20160927
  Receipt Date: 20160927
  Transmission Date: 20161109
  Serious: Yes (Other)
  Sender: FDA-Public Use
  Company Number: LU-ASTRAZENECA-2016SF00984

PATIENT
  Age: 80 Year
  Sex: Female

DRUGS (1)
  1. BYDUREON [Suspect]
     Active Substance: EXENATIDE
     Route: 065
     Dates: start: 2015

REACTIONS (2)
  - Urticaria [Recovered/Resolved]
  - Nasal cavity cancer [Unknown]
